FAERS Safety Report 8151403-3 (Version None)
Quarter: 2012Q1

REPORT INFORMATION
  Report Type: 
  Country: None (occurrence: None)
  Receive Date: 20120220
  Receipt Date: 20120215
  Transmission Date: 20120608
  Serious: Yes (Death)
  Sender: FDA-Public Use
  Company Number: BR-ASTRAZENECA-2012SE10712

PATIENT
  Age: 66 Year
  Sex: Male

DRUGS (1)
  1. BRILINTA [Suspect]
     Route: 048

REACTIONS (3)
  - CARDIAC FAILURE [None]
  - DIABETES MELLITUS [None]
  - RESPIRATORY FAILURE [None]
